FAERS Safety Report 16376143 (Version 1)
Quarter: 2019Q2

REPORT INFORMATION
  Report Type: Spontaneous
  Country: JP (occurrence: JP)
  Receive Date: 20190531
  Receipt Date: 20190531
  Transmission Date: 20190711
  Serious: Yes (Other)
  Sender: FDA-Public Use
  Company Number: JP-ELI_LILLY_AND_COMPANY-JP201905013108AA

PATIENT
  Age: 40 Year
  Sex: Female

DRUGS (9)
  1. TRULICITY [Suspect]
     Active Substance: DULAGLUTIDE
     Indication: DIABETES MELLITUS
     Dosage: 0.75 MG, WEEKLY (1/W)
     Route: 058
     Dates: start: 201903
  2. FERROMIA [Concomitant]
     Active Substance: SODIUM FERROUS CITRATE
  3. CLOPIDOGREL [Concomitant]
     Active Substance: CLOPIDOGREL BISULFATE
     Route: 048
  4. PARIET [Concomitant]
     Active Substance: RABEPRAZOLE SODIUM
  5. TRESIBA [Concomitant]
     Active Substance: INSULIN DEGLUDEC
     Dosage: 6 INTERNATIONAL UNIT, EACH EVENING
  6. ATORVASTATIN [Concomitant]
     Active Substance: ATORVASTATIN
  7. AZOSEMIDE [Concomitant]
     Active Substance: AZOSEMIDE
     Route: 048
  8. NIFEDIPINE. [Concomitant]
     Active Substance: NIFEDIPINE
  9. HUMALOG [Concomitant]
     Active Substance: INSULIN LISPRO
     Dosage: 17 INTERNATIONAL UNIT
     Route: 058

REACTIONS (1)
  - Nephrotic syndrome [Not Recovered/Not Resolved]
